FAERS Safety Report 10605761 (Version 2)
Quarter: 2014Q4

REPORT INFORMATION
  Report Type: Spontaneous
  Country: BE (occurrence: BE)
  Receive Date: 20141125
  Receipt Date: 20141125
  Transmission Date: 20150529
  Serious: Yes (Hospitalization)
  Sender: FDA-Public Use
  Company Number: BE-IPSEN BIOPHARMACEUTICALS, INC.-2014-4370

PATIENT
  Age: 57 Year
  Sex: Male

DRUGS (1)
  1. SOMATULINE AUTOGEL [Suspect]
     Active Substance: LANREOTIDE ACETATE
     Indication: PRODUCT USED FOR UNKNOWN INDICATION
     Dosage: NOT REPORTED
     Route: 065
     Dates: start: 20140624

REACTIONS (6)
  - Pruritus generalised [Recovering/Resolving]
  - Injection site induration [Recovering/Resolving]
  - Insomnia [Unknown]
  - Injection site rash [Recovering/Resolving]
  - Urticaria [Unknown]
  - Injection site nodule [Unknown]

NARRATIVE: CASE EVENT DATE: 201406
